FAERS Safety Report 20180236 (Version 1)
Quarter: 2021Q4

REPORT INFORMATION
  Report Type: Spontaneous
  Country: US (occurrence: None)
  Receive Date: 20211213
  Receipt Date: 20211213
  Transmission Date: 20220303
  Serious: Yes (Life-Threatening)
  Sender: FDA-Public Use
  Company Number: None

PATIENT
  Age: 73 Year
  Sex: Male

DRUGS (2)
  1. BARICITINIB [Suspect]
     Active Substance: BARICITINIB
     Indication: COVID-19
     Dosage: FREQUENCY : DAILY;?
     Route: 048
  2. Heparin 5000 units subcutaneously q8h [Concomitant]
     Dates: start: 20211204, end: 20211210

REACTIONS (4)
  - Deep vein thrombosis [None]
  - Pneumothorax [None]
  - Oxygen saturation decreased [None]
  - Pneumomediastinum [None]

NARRATIVE: CASE EVENT DATE: 20211210
